FAERS Safety Report 7425734-6 (Version None)
Quarter: 2011Q2

REPORT INFORMATION
  Report Type: 
  Country: None (occurrence: None)
  Receive Date: 20110420
  Receipt Date: 20110414
  Transmission Date: 20111010
  Serious: Yes (Death, Life-Threatening, Hospitalization, Other)
  Sender: FDA-Public Use
  Company Number: FR-AMGEN-US229440

PATIENT
  Age: 57 Year
  Sex: Male

DRUGS (2)
  1. ENBREL [Suspect]
     Indication: RHEUMATOID ARTHRITIS
     Dosage: 50 MG, 2 TIMES/WK
     Route: 058
     Dates: start: 20040415, end: 20070415
  2. ARAVA [Suspect]
     Dosage: 20 MG, QD
     Route: 048
     Dates: start: 20040119, end: 20070401

REACTIONS (2)
  - CERVICAL ROOT PAIN [None]
  - NON-SMALL CELL LUNG CANCER [None]
